FAERS Safety Report 7048209-5 (Version None)
Quarter: 2010Q4

REPORT INFORMATION
  Report Type: 
  Country: None (occurrence: None)
  Receive Date: 20101015
  Receipt Date: 20101005
  Transmission Date: 20110411
  Serious: Yes (Other)
  Sender: FDA-Public Use
  Company Number: PHHY2010US66834

PATIENT
  Age: 48 Year
  Sex: Female

DRUGS (1)
  1. RECLAST [Suspect]
     Dosage: 5 MG
     Route: 042
     Dates: start: 20091201

REACTIONS (3)
  - BONE DISORDER [None]
  - PAIN IN JAW [None]
  - TOOTH EXTRACTION [None]
